FAERS Safety Report 25075758 (Version 1)
Quarter: 2025Q1

REPORT INFORMATION
  Report Type: Spontaneous
  Country: US (occurrence: US)
  Receive Date: 20250313
  Receipt Date: 20250313
  Transmission Date: 20250409
  Serious: No
  Sender: SANOFI AVENTIS
  Company Number: US-SA-2025SA073256

PATIENT
  Age: 60 Year
  Sex: Male
  Weight: 97.5 kg

DRUGS (1)
  1. DUPIXENT [Suspect]
     Active Substance: DUPILUMAB

REACTIONS (2)
  - Brain fog [Unknown]
  - Amnesia [Unknown]

NARRATIVE: CASE EVENT DATE: 20250310
